FAERS Safety Report 20216396 (Version 1)
Quarter: 2021Q4

REPORT INFORMATION
  Report Type: Spontaneous
  Country: US (occurrence: None)
  Receive Date: 20211221
  Receipt Date: 20211221
  Transmission Date: 20220303
  Serious: Yes (Disabling)
  Sender: FDA-Public Use
  Company Number: None

PATIENT
  Age: 39 Year
  Sex: Female
  Weight: 76.5 kg

DRUGS (8)
  1. .DELTA.8-TETRAHYDROCANNABINOL\HERBALS [Suspect]
     Active Substance: .DELTA.8-TETRAHYDROCANNABINOL\HERBALS
     Indication: Sleep disorder
     Dosage: OTHER QUANTITY : 1 GUMMY;?
     Route: 048
  2. DEVICE [Concomitant]
     Active Substance: DEVICE
  3. CELEXA [Concomitant]
     Active Substance: CITALOPRAM HYDROBROMIDE
  4. BUSPAR [Concomitant]
     Active Substance: BUSPIRONE HYDROCHLORIDE
  5. ATIVAN [Concomitant]
     Active Substance: LORAZEPAM
  6. IRON [Concomitant]
     Active Substance: IRON
  7. VITAMIN D [Concomitant]
     Active Substance: VITAMIN D NOS
  8. PROBIOTICS NOS [Concomitant]
     Active Substance: PROBIOTICS NOS

REACTIONS (5)
  - Dizziness [None]
  - Confusional state [None]
  - Palpitations [None]
  - Blood pressure increased [None]
  - Blood glucose increased [None]

NARRATIVE: CASE EVENT DATE: 20211221
